FAERS Safety Report 7652525-3 (Version None)
Quarter: 2011Q3

REPORT INFORMATION
  Report Type: 
  Country: None (occurrence: None)
  Receive Date: 20110801
  Receipt Date: 20110801
  Transmission Date: 20111222
  Serious: Yes (Other)
  Sender: FDA-Public Use
  Company Number: None

PATIENT
  Sex: Female

DRUGS (1)
  1. PAROXETINE HCL [Suspect]
     Dosage: 10 MG QD PO
     Route: 048
     Dates: start: 20110724, end: 20110731

REACTIONS (2)
  - BLISTER [None]
  - SKIN DISORDER [None]
